FAERS Safety Report 17173004 (Version 1)
Quarter: 2019Q4

REPORT INFORMATION
  Report Type: Spontaneous
  Country: US (occurrence: US)
  Receive Date: 20191218
  Receipt Date: 20191218
  Transmission Date: 20200122
  Serious: No
  Sender: FDA-Public Use
  Company Number: US-ADAMAS PHARMA, LLC-2019ADA02463

PATIENT
  Sex: Female

DRUGS (5)
  1. CELEXA [Concomitant]
     Active Substance: CITALOPRAM HYDROBROMIDE
  2. GOCOVRI [Suspect]
     Active Substance: AMANTADINE
     Indication: DYSKINESIA
     Dosage: 274 MG, 1X/DAY, AT BEDTIME
     Route: 048
     Dates: start: 20180614
  3. AZILECT [Suspect]
     Active Substance: RASAGILINE MESYLATE
     Dosage: UNK
     Dates: end: 201910
  4. VITAMIN D3 [Concomitant]
     Active Substance: CHOLECALCIFEROL
  5. RYTARY [Suspect]
     Active Substance: CARBIDOPA\LEVODOPA

REACTIONS (1)
  - Orthostatic hypotension [Not Recovered/Not Resolved]
